FAERS Safety Report 21316670 (Version 4)
Quarter: 2023Q1

REPORT INFORMATION
  Report Type: Spontaneous
  Country: US (occurrence: US)
  Receive Date: 20220911
  Receipt Date: 20230118
  Transmission Date: 20230417
  Serious: No
  Sender: FDA-Public Use
  Company Number: US-SA-SAC20220817001807

PATIENT
  Age: 45 Year
  Sex: Female

DRUGS (1)
  1. AUBAGIO [Suspect]
     Active Substance: TERIFLUNOMIDE
     Indication: Multiple sclerosis
     Dosage: 14MG, QD
     Route: 048
     Dates: start: 20220401

REACTIONS (16)
  - Depression [Unknown]
  - Musculoskeletal stiffness [Unknown]
  - Muscle spasticity [Not Recovered/Not Resolved]
  - Pain [Unknown]
  - Fatigue [Not Recovered/Not Resolved]
  - Visual impairment [Unknown]
  - Bladder disorder [Unknown]
  - Cognitive disorder [Unknown]
  - Fall [Unknown]
  - Feeling abnormal [Unknown]
  - Sexual dysfunction [Unknown]
  - Balance disorder [Unknown]
  - Urinary tract disorder [Unknown]
  - Hypoaesthesia [Not Recovered/Not Resolved]
  - Alopecia [Unknown]
  - Paraesthesia [Not Recovered/Not Resolved]

NARRATIVE: CASE EVENT DATE: 20220101
